FAERS Safety Report 4749837-X (Version None)
Quarter: 2005Q3

REPORT INFORMATION
  Report Type: 
  Country: None (occurrence: None)
  Receive Date: 20050818
  Receipt Date: 20050803
  Transmission Date: 20060218
  Serious: Yes (Other)
  Sender: FDA-Public Use
  Company Number: 2005-0008587

PATIENT
  Age: 38 Year
  Sex: Male
  Weight: 98.6 kg

DRUGS (3)
  1. TENOFOVIR DISOPROXIL FUMARATE (TENOFOVIR DISOPROXIL FUMARATE) [Suspect]
     Indication: HIV INFECTION
     Dosage: 300 MG, 1 IN 1 D, ORAL
     Route: 048
     Dates: start: 20050131
  2. EMTRICITABINE (EMTRICITABINE) [Suspect]
     Indication: HIV INFECTION
     Dosage: 200 MG, 1 IN  1D, ORAL
     Route: 048
     Dates: start: 20050131, end: 20050727
  3. KALETRA [Suspect]
     Indication: HIV INFECTION
     Dosage: 1 IN 1 D, ORAL
     Route: 048
     Dates: start: 20050131, end: 20050727

REACTIONS (4)
  - ALCOHOL USE [None]
  - BLOOD TRIGLYCERIDES INCREASED [None]
  - LABORATORY TEST INTERFERENCE [None]
  - LIPASE INCREASED [None]
